FAERS Safety Report 6517783-7 (Version None)
Quarter: 2009Q4

REPORT INFORMATION
  Report Type: 
  Country: None (occurrence: None)
  Receive Date: 20091218
  Receipt Date: 20091202
  Transmission Date: 20100525
  Serious: Yes (Death)
  Sender: FDA-Public Use
  Company Number: 2009003723

PATIENT
  Age: 67 Year
  Sex: Male
  Weight: 53 kg

DRUGS (8)
  1. ERLOTINIB HYDROCHLORIDE [Suspect]
     Indication: LUNG ADENOCARCINOMA
     Dosage: (150 MG,QD),ORAL
     Route: 048
     Dates: start: 20080612, end: 20080702
  2. POLAPREZINC (POLAPREZINC) [Concomitant]
  3. BIOFERMIN R (STREPTOCOCCUS FAECALIS) [Concomitant]
  4. MUCOSOLVAN (AMBROXOL HYDROCHLORIDE) [Concomitant]
  5. CODEINE PHOSPHATE (CODEINE PHOSPHATE) [Concomitant]
  6. LENDORM [Concomitant]
  7. ALVESCO [Concomitant]
  8. FUNGIZONE [Concomitant]

REACTIONS (4)
  - LABORATORY TEST ABNORMAL [None]
  - LUNG ADENOCARCINOMA [None]
  - MALIGNANT NEOPLASM PROGRESSION [None]
  - PNEUMONIA ASPIRATION [None]
